FAERS Safety Report 14031642 (Version 1)
Quarter: 2017Q4

REPORT INFORMATION
  Report Type: Spontaneous
  Country: IL (occurrence: IL)
  Receive Date: 20171002
  Receipt Date: 20171002
  Transmission Date: 20180321
  Serious: Yes (Hospitalization)
  Sender: FDA-Public Use
  Company Number: IL-SA-2017SA170778

PATIENT
  Age: 11 Month
  Sex: Male

DRUGS (3)
  1. ISONIAZID. [Suspect]
     Active Substance: ISONIAZID
     Indication: TUBERCULOSIS
     Route: 065
  2. RIFAMPICIN [Suspect]
     Active Substance: RIFAMPIN
     Indication: TUBERCULOSIS
     Route: 065
  3. COLISTIN [Concomitant]
     Active Substance: COLISTIN
     Route: 030

REACTIONS (18)
  - Hepatic failure [Recovered/Resolved]
  - Vomiting [Recovered/Resolved]
  - Hepatic necrosis [Recovered/Resolved]
  - Seizure [Recovered/Resolved]
  - Bilirubin conjugated increased [Recovered/Resolved]
  - Hepatitis fulminant [Recovered/Resolved]
  - Stupor [Recovered/Resolved]
  - Hepatomegaly [Recovered/Resolved]
  - Prothrombin time prolonged [Recovered/Resolved]
  - Blood bilirubin increased [Recovered/Resolved]
  - Hepatic steatosis [Recovered/Resolved]
  - Jaundice [Recovered/Resolved]
  - Liver tenderness [Recovered/Resolved]
  - Aspartate aminotransferase increased [Recovered/Resolved]
  - Ammonia increased [Recovered/Resolved]
  - Lethargy [Recovered/Resolved]
  - Cholestasis [Recovered/Resolved]
  - Blood glucose decreased [Recovered/Resolved]
